FAERS Safety Report 19501800 (Version 1)
Quarter: 2021Q3

REPORT INFORMATION
  Report Type: Spontaneous
  Country: US (occurrence: US)
  Receive Date: 20210703
  Receipt Date: 20210703
  Transmission Date: 20211014
  Serious: Yes (Hospitalization)
  Sender: FDA-Public Use
  Company Number: None

PATIENT
  Age: 27 Year
  Sex: Female
  Weight: 92.3 kg

DRUGS (3)
  1. HERCEPTIN [Suspect]
     Active Substance: TRASTUZUMAB
     Dates: end: 20210413
  2. TAXOTERE [Suspect]
     Active Substance: DOCETAXEL
     Dates: end: 20210413
  3. PERTUZUMAB. [Suspect]
     Active Substance: PERTUZUMAB
     Dates: end: 20210413

REACTIONS (10)
  - Abdominal discomfort [None]
  - Ovarian hyperstimulation syndrome [None]
  - White blood cell count increased [None]
  - Nausea [None]
  - Tachycardia [None]
  - Dehydration [None]
  - Abdominal distension [None]
  - Vomiting [None]
  - Acute kidney injury [None]
  - Swelling [None]

NARRATIVE: CASE EVENT DATE: 20210418
